FAERS Safety Report 6303642-1 (Version None)
Quarter: 2009Q3

REPORT INFORMATION
  Report Type: 
  Country: None (occurrence: None)
  Receive Date: 20090807
  Receipt Date: 20090807
  Transmission Date: 20100115
  Serious: Yes (Disabling, Other)
  Sender: FDA-Public Use
  Company Number: None

PATIENT
  Age: 34 Year
  Sex: Male
  Weight: 95.2554 kg

DRUGS (2)
  1. ZICAM NASAL SWABS [Suspect]
     Indication: NASAL CONGESTION
     Dosage: 3SWABS WEEKLY, OVER 4 TO 5 YEARS
  2. ZICAM NASAL SWABS [Suspect]
     Indication: NASOPHARYNGITIS
     Dosage: 3SWABS WEEKLY, OVER 4 TO 5 YEARS

REACTIONS (2)
  - ANOSMIA [None]
  - HYPOGEUSIA [None]
